FAERS Safety Report 13363586 (Version 1)
Quarter: 2017Q1

REPORT INFORMATION
  Report Type: Spontaneous
  Country: US (occurrence: US)
  Receive Date: 20170323
  Receipt Date: 20170323
  Transmission Date: 20170429
  Serious: Yes (Other)
  Sender: FDA-Public Use
  Company Number: US-PFIZER INC-2835291

PATIENT
  Age: 68 Year

DRUGS (4)
  1. CYTOXAN [Suspect]
     Active Substance: CYCLOPHOSPHAMIDE
     Indication: CHRONIC LYMPHOCYTIC LEUKAEMIA
     Dosage: 1500 MG, D1, FREQ: 1 DAY; INTERVAL: 21
     Route: 042
     Dates: start: 20111207, end: 20120118
  2. VINCRISTINE SULFATE. [Suspect]
     Active Substance: VINCRISTINE SULFATE
     Indication: CHRONIC LYMPHOCYTIC LEUKAEMIA
     Dosage: 2 MG, D1, FREQ: 1 DAY; INTERVAL: 21
     Route: 042
     Dates: start: 20111207, end: 20120118
  3. ADRIAMYCIN [Suspect]
     Active Substance: DOXORUBICIN HYDROCHLORIDE
     Indication: CHRONIC LYMPHOCYTIC LEUKAEMIA
     Dosage: 100 MG, 50 MG/M2, FREQ: 1 DAY; INTERVAL: 21
     Route: 042
     Dates: start: 20111207, end: 20111228
  4. PREDNISONE. [Suspect]
     Active Substance: PREDNISONE
     Indication: CHRONIC LYMPHOCYTIC LEUKAEMIA
     Dosage: 80 MG, D1-5, FREQ: 1 DAY; INTERVAL: 21
     Route: 048
     Dates: start: 20111207, end: 20120118

REACTIONS (2)
  - Neutropenia [Unknown]
  - Anaemia [Unknown]

NARRATIVE: CASE EVENT DATE: 20120106
